FAERS Safety Report 5314379-X (Version None)
Quarter: 2007Q2

REPORT INFORMATION
  Report Type: 
  Country: None (occurrence: None)
  Receive Date: 20070502
  Receipt Date: 20070424
  Transmission Date: 20071010
  Serious: Yes (Other)
  Sender: FDA-Public Use
  Company Number: PHBS2007CN07259

PATIENT
  Sex: Male

DRUGS (2)
  1. LAMISIL [Suspect]
     Indication: ONYCHOMYCOSIS
     Dosage: UNK, UNK
     Route: 048
     Dates: start: 20051101
  2. LAMISIL [Suspect]
     Dosage: UNK, UNK
     Route: 061
     Dates: start: 20051101

REACTIONS (2)
  - HEPATIC CIRRHOSIS [None]
  - PLATELET COUNT DECREASED [None]
